FAERS Safety Report 11184336 (Version 3)
Quarter: 2015Q3

REPORT INFORMATION
  Report Type: Spontaneous
  Country: US (occurrence: US)
  Receive Date: 20150612
  Receipt Date: 20150706
  Transmission Date: 20151125
  Serious: No
  Sender: FDA-Public Use
  Company Number: US-PFIZER INC-2015198595

PATIENT
  Age: 62 Year
  Sex: Male
  Weight: 134 kg

DRUGS (3)
  1. LIPO-FLAVONOID [Concomitant]
     Indication: TINNITUS
     Dosage: UNK
  2. HYDROCODONE [Concomitant]
     Active Substance: HYDROCODONE
     Dosage: 3 TABLETS THAT WAS CALLED ONE DOSE
  3. PROTONIX [Suspect]
     Active Substance: PANTOPRAZOLE SODIUM
     Indication: GASTROOESOPHAGEAL REFLUX DISEASE
     Dosage: 40 MG, 2X/DAY

REACTIONS (1)
  - Drug screen positive [Unknown]
